FAERS Safety Report 5097751-5 (Version None)
Quarter: 2006Q3

REPORT INFORMATION
  Report Type: 
  Country: None (occurrence: None)
  Receive Date: 20060824
  Receipt Date: 20060814
  Transmission Date: 20061208
  Serious: Yes (Hospitalization)
  Sender: FDA-Public Use
  Company Number: B0435036A

PATIENT
  Age: 50 Year
  Sex: Male

DRUGS (3)
  1. COREG [Suspect]
  2. DIGITOXIN TAB [Suspect]
     Dosage: 1 MG
  3. AMIODARONE (AMIODARONE) [Suspect]
     Dosage: ORAL
     Route: 048

REACTIONS (3)
  - BUNDLE BRANCH BLOCK LEFT [None]
  - HAEMODYNAMIC INSTABILITY [None]
  - TORSADE DE POINTES [None]
